FAERS Safety Report 7777292-4 (Version None)
Quarter: 2011Q3

REPORT INFORMATION
  Report Type: 
  Country: None (occurrence: None)
  Receive Date: 20110926
  Receipt Date: 20110913
  Transmission Date: 20111222
  Serious: Yes (Death, Other)
  Sender: FDA-Public Use
  Company Number: US-BAYER-200940632NA

PATIENT
  Age: 68 Year
  Sex: Female
  Weight: 73 kg

DRUGS (20)
  1. TRASYLOL [Suspect]
     Indication: MITRAL VALVE REPLACEMENT
     Dosage: 200 ML, UNK
     Route: 042
     Dates: start: 20040426, end: 20040426
  2. TRASYLOL [Suspect]
     Dosage: 1 ML, ONCE
     Route: 042
     Dates: start: 20040426, end: 20040426
  3. TRASYLOL [Suspect]
     Dosage: 1000000 U, UNK
     Route: 042
     Dates: start: 20040426
  4. TRASYLOL [Suspect]
     Dosage: UNK
     Route: 042
  5. COUMADIN [Concomitant]
     Dosage: 10 MG, UNK
     Route: 048
     Dates: start: 20040419
  6. PROTAMINE [Concomitant]
     Dosage: 220 MG, UNK
     Dates: start: 20040426
  7. LEVAQUIN [Concomitant]
     Dosage: 250 MG, QOD
     Route: 048
  8. AMIODARONE HCL [Concomitant]
     Dosage: 200 MG, QD
     Route: 048
     Dates: start: 20030101
  9. EPINEPHRINE [Concomitant]
     Indication: BLOOD PRESSURE MANAGEMENT
     Dosage: UNK
     Route: 042
     Dates: start: 20040414
  10. GENTAMYCIN SULFATE [Concomitant]
     Dosage: 140 MG, UNK
     Route: 042
     Dates: start: 20040414
  11. HEPARIN [Concomitant]
     Dosage: 19000 U, UNK
     Dates: start: 20040426
  12. DOBUTAMINE HCL [Concomitant]
     Dosage: UNK
     Dates: start: 20040426
  13. CEFAZOLIN [Concomitant]
     Dosage: 1 G, TID
     Route: 042
     Dates: start: 20040414
  14. TRASYLOL [Suspect]
     Dosage: 50 CC/HOUR
     Route: 042
     Dates: start: 20040426, end: 20040426
  15. DIGOXIN [Concomitant]
     Dosage: 0.25 MG, UNK
     Route: 042
     Dates: start: 20040419
  16. DIFLUCAN [Concomitant]
     Dosage: 200 MG, QD
     Route: 042
     Dates: start: 20040424
  17. TECHNETIUM TC 99M GENERATOR [Concomitant]
     Dosage: 23.9 MCI, UNK
  18. VANCOMYCIN [Concomitant]
     Dosage: 2 G, UNK
     Route: 042
     Dates: start: 20040417
  19. SODIUM NITROPRUSSIDE [Concomitant]
     Indication: BLOOD PRESSURE MANAGEMENT
     Dosage: UNK
     Route: 042
     Dates: start: 20040414
  20. EPINEPHRINE [Concomitant]
     Dosage: 2 MG, UNK
     Dates: start: 20040426

REACTIONS (13)
  - RENAL IMPAIRMENT [None]
  - FEAR [None]
  - PAIN [None]
  - ANHEDONIA [None]
  - DEATH [None]
  - STRESS [None]
  - ANXIETY [None]
  - UNEVALUABLE EVENT [None]
  - RENAL FAILURE [None]
  - RENAL INJURY [None]
  - EMOTIONAL DISTRESS [None]
  - MULTI-ORGAN FAILURE [None]
  - INJURY [None]
